FAERS Safety Report 8134806-2 (Version None)
Quarter: 2012Q1

REPORT INFORMATION
  Report Type: 
  Country: None (occurrence: None)
  Receive Date: 20120214
  Receipt Date: 20120203
  Transmission Date: 20120608
  Serious: Yes (Other)
  Sender: FDA-Public Use
  Company Number: PE-BRISTOL-MYERS SQUIBB COMPANY-16311730

PATIENT
  Age: 40 Year
  Sex: Male

DRUGS (1)
  1. DASATINIB [Suspect]

REACTIONS (3)
  - HEPATIC CIRRHOSIS [None]
  - GASTROINTESTINAL HAEMORRHAGE [None]
  - ASCITES [None]
